FAERS Safety Report 9816167 (Version 1)
Quarter: 2014Q1

REPORT INFORMATION
  Report Type: Spontaneous
  Country: US (occurrence: US)
  Receive Date: 20140114
  Receipt Date: 20140114
  Transmission Date: 20141002
  Serious: Yes (Hospitalization)
  Sender: FDA-Public Use
  Company Number: US-ACTAVIS-2013-24399

PATIENT
  Age: 36 Month
  Sex: Female

DRUGS (2)
  1. BUPRENORPHINE-NALOXONE (AELLC) [Suspect]
     Indication: PAIN
     Route: 048
  2. BUPRENORPHINE-NALOXONE (AELLC) [Suspect]
     Indication: DRUG DEPENDENCE

REACTIONS (3)
  - Accidental exposure to product by child [Recovered/Resolved]
  - Accidental overdose [Recovered/Resolved]
  - Vomiting [Recovered/Resolved]
